FAERS Safety Report 21215998 (Version 1)
Quarter: 2022Q3

REPORT INFORMATION
  Report Type: Spontaneous
  Country: US (occurrence: None)
  Receive Date: 20220815
  Receipt Date: 20220815
  Transmission Date: 20221026
  Serious: Yes (Hospitalization)
  Sender: FDA-Public Use
  Company Number: None

PATIENT
  Age: 6 Year
  Sex: Female

DRUGS (2)
  1. HALOPERIDOL [Suspect]
     Active Substance: HALOPERIDOL
     Route: 048
  2. CLONIDINE [Concomitant]
     Active Substance: CLONIDINE

REACTIONS (3)
  - Product dispensing error [None]
  - Accidental exposure to product [None]
  - Dystonia [None]

NARRATIVE: CASE EVENT DATE: 20220803
